FAERS Safety Report 8119929-6 (Version None)
Quarter: 2012Q1

REPORT INFORMATION
  Report Type: 
  Country: None (occurrence: None)
  Receive Date: 20120203
  Receipt Date: 20120120
  Transmission Date: 20120608
  Serious: Yes (Hospitalization)
  Sender: FDA-Public Use
  Company Number: JPI-P-019458

PATIENT
  Age: 57 Year
  Sex: Female

DRUGS (1)
  1. XYREM [Suspect]
     Indication: CATAPLEXY
     Dosage: 9 GM (4.5 GM, 2 IN 1 D), ORAL
     Route: 048
     Dates: start: 20070605

REACTIONS (17)
  - IMPAIRED DRIVING ABILITY [None]
  - ORAL DISCOMFORT [None]
  - PARAESTHESIA ORAL [None]
  - HYPOAESTHESIA ORAL [None]
  - INSOMNIA [None]
  - RASH ERYTHEMATOUS [None]
  - EAR PAIN [None]
  - GLOSSODYNIA [None]
  - TINNITUS [None]
  - ABNORMAL BEHAVIOUR [None]
  - FATIGUE [None]
  - NODULE [None]
  - BURNING SENSATION [None]
  - TOOTHACHE [None]
  - RASH PRURITIC [None]
  - WEIGHT DECREASED [None]
  - PARAESTHESIA [None]
